FAERS Safety Report 10995699 (Version 2)
Quarter: 2015Q2

REPORT INFORMATION
  Report Type: Spontaneous
  Country: JP (occurrence: JP)
  Receive Date: 20150407
  Receipt Date: 20150520
  Transmission Date: 20150821
  Serious: Yes (Hospitalization)
  Sender: FDA-Public Use
  Company Number: JP-ELI_LILLY_AND_COMPANY-JP201502006434

PATIENT
  Age: 73 Year
  Sex: Male
  Weight: 58.5 kg

DRUGS (12)
  1. RINDERON                           /00008501/ [Suspect]
     Active Substance: BETAMETHASONE
     Indication: ORGANISING PNEUMONIA
     Dosage: 1 MG, DAILY
     Route: 048
  2. LANSOPRAZOLE. [Concomitant]
     Active Substance: LANSOPRAZOLE
     Indication: ORGANISING PNEUMONIA
     Dosage: 15 MG, DAILY
     Route: 048
  3. RISPERDAL [Concomitant]
     Active Substance: RISPERIDONE
     Indication: DELIRIUM
     Dosage: 0.5 MG, PRN
     Route: 048
     Dates: start: 20141205
  4. ZYPREXA [Suspect]
     Active Substance: OLANZAPINE
     Indication: SCHIZOAFFECTIVE DISORDER
     Dosage: 5 MG, DAILY
     Route: 048
     Dates: start: 20150106, end: 20150108
  5. ZYPREXA [Suspect]
     Active Substance: OLANZAPINE
     Dosage: 10 MG, DAILY
     Route: 048
     Dates: start: 20150115, end: 20150207
  6. ZYPREXA [Suspect]
     Active Substance: OLANZAPINE
     Dosage: 8 MG, DAILY
     Route: 048
     Dates: start: 20150208, end: 20150209
  7. ZYPREXA [Suspect]
     Active Substance: OLANZAPINE
     Dosage: 7.5 MG, DAILY
     Route: 048
     Dates: start: 20150109, end: 20150114
  8. FLIVAS [Concomitant]
     Active Substance: NAFTOPIDIL
     Indication: BENIGN PROSTATIC HYPERPLASIA
     Dosage: 50 MG, DAILY
     Route: 048
  9. CONTOMIN                           /00011907/ [Suspect]
     Active Substance: CHLORPROMAZINE HIBENZATE
     Indication: DELIRIUM
     Dosage: 75 MG, DAILY
     Route: 048
     Dates: start: 20150106
  10. REBAMIPIDE [Concomitant]
     Active Substance: REBAMIPIDE
     Indication: ORGANISING PNEUMONIA
     Dosage: 100 MG, DEILY
     Route: 048
  11. RISPERDAL [Concomitant]
     Active Substance: RISPERIDONE
     Indication: INSOMNIA
  12. AVOLVE [Concomitant]
     Active Substance: DUTASTERIDE
     Indication: BENIGN PROSTATIC HYPERPLASIA
     Dosage: 0.5 MG, DAILY
     Route: 048

REACTIONS (4)
  - Jaundice [Recovering/Resolving]
  - Anaemia [Not Recovered/Not Resolved]
  - Wrong technique in drug usage process [Recovered/Resolved]
  - Liver disorder [Recovered/Resolved]

NARRATIVE: CASE EVENT DATE: 20150109
